FAERS Safety Report 16880153 (Version 4)
Quarter: 2021Q4

REPORT INFORMATION
  Report Type: Report from Study
  Country: FR (occurrence: None)
  Receive Date: 20191003
  Receipt Date: 20211217
  Transmission Date: 20220303
  Serious: Yes (Death, Hospitalization, Other)
  Sender: FDA-Public Use
  Company Number: FR-ROCHE-2345992

PATIENT
  Age: 65 Year
  Sex: Male

DRUGS (2)
  1. ATEZOLIZUMAB [Suspect]
     Active Substance: ATEZOLIZUMAB
     Indication: Non-small cell lung cancer stage IV
     Dosage: LAST ADMINISTRATION OF ATEZOLIZUMAB BEFORE THE SAE: 11/JUN/2019 (CYCLE 5)
     Route: 041
     Dates: start: 20190319, end: 20190702
  2. VINORELBINE [Suspect]
     Active Substance: VINORELBINE TARTRATE
     Indication: Non-small cell lung cancer stage IV
     Dosage: LAST ADMINISTRATION OF VINORELBINE BEFORE THE SAE: 11/JUN/2019 (CYCLE 5)?ON DAYS 1, 3 AND 5 OF EACH
     Route: 048
     Dates: start: 20190319, end: 20190702

REACTIONS (7)
  - Respiratory acidosis [Fatal]
  - Dyspnoea [Fatal]
  - Dyspnoea [Unknown]
  - Febrile bone marrow aplasia [Recovered/Resolved]
  - Pleurisy [Not Recovered/Not Resolved]
  - Neutropenia [Unknown]
  - Anaemia [Unknown]

NARRATIVE: CASE EVENT DATE: 20190505
